FAERS Safety Report 10184932 (Version 4)
Quarter: 2015Q4

REPORT INFORMATION
  Report Type: Spontaneous
  Country: US (occurrence: US)
  Receive Date: 20140521
  Receipt Date: 20151009
  Transmission Date: 20160304
  Serious: Yes (Death, Other)
  Sender: FDA-Public Use
  Company Number: US-ROCHE-1404007

PATIENT
  Age: 56 Year
  Sex: Male

DRUGS (5)
  1. XOLAIR [Suspect]
     Active Substance: OMALIZUMAB
     Indication: ASTHMA
     Route: 058
  2. QVAR [Concomitant]
     Active Substance: BECLOMETHASONE DIPROPIONATE
     Dosage: 2 PUFFS
     Route: 055
  3. VENTOLIN [Concomitant]
     Active Substance: ALBUTEROL SULFATE
     Route: 065
  4. LOVENOX [Concomitant]
     Active Substance: ENOXAPARIN SODIUM
     Route: 058
  5. ALBUTEROL. [Concomitant]
     Active Substance: ALBUTEROL

REACTIONS (11)
  - Respiratory failure [Unknown]
  - Cerebrovascular accident [Unknown]
  - Sepsis [Unknown]
  - Pneumonia aspiration [Unknown]
  - Death [Fatal]
  - Anaemia [Unknown]
  - Upper gastrointestinal haemorrhage [Unknown]
  - Septic shock [Unknown]
  - Deep vein thrombosis [Unknown]
  - Leukocytosis [Unknown]
  - Oesophagitis ulcerative [Unknown]

NARRATIVE: CASE EVENT DATE: 20140126
